FAERS Safety Report 5611740-0 (Version None)
Quarter: 2008Q1

REPORT INFORMATION
  Report Type: 
  Country: None (occurrence: None)
  Receive Date: 20080128
  Receipt Date: 20060203
  Transmission Date: 20080703
  Serious: Yes (Hospitalization, Disabling)
  Sender: FDA-Public Use
  Company Number: DSA_27722_2006

PATIENT
  Sex: Male
  Weight: 101.6057 kg

DRUGS (12)
  1. DILTIAZEM HYDROCHLORIDE               (TIAZAC XC- [Suspect]
     Indication: HYPERTENSION
     Dosage: (360 MG QD ORAL)
     Route: 048
     Dates: start: 20060112
  2. DIGOXIN [Concomitant]
  3. TEMAZEPAM [Concomitant]
  4. AMILORIDE HCL AND HYDROCHLOROTHIAZIDE [Concomitant]
  5. ZAROXOLYN [Concomitant]
  6. LISINOPRIL [Concomitant]
  7. TERAZOSIN HCL [Concomitant]
  8. TAMOXIFEN [Concomitant]
  9. WARFARIN SODIUM [Concomitant]
  10. ASPIRIN [Concomitant]
  11. AMIODARONE HCL [Concomitant]
  12. MONOCOR [Concomitant]

REACTIONS (2)
  - BLINDNESS TRANSIENT [None]
  - CARDIAC ARREST [None]
